FAERS Safety Report 12701004 (Version 1)
Quarter: 2016Q3

REPORT INFORMATION
  Report Type: Spontaneous
  Country: US (occurrence: None)
  Receive Date: 20160830
  Receipt Date: 20160830
  Transmission Date: 20161109
  Serious: Yes (Disabling, Other)
  Sender: FDA-Public Use
  Company Number: None

PATIENT
  Age: 31 Year
  Sex: Female
  Weight: 47.63 kg

DRUGS (1)
  1. COSENTYX [Suspect]
     Active Substance: SECUKINUMAB
     Indication: PSORIASIS
     Dosage: 4 STARTER DOSES INJECTION
     Dates: start: 20150401, end: 20151130

REACTIONS (6)
  - Vomiting [None]
  - Diarrhoea [None]
  - Decreased appetite [None]
  - Fatigue [None]
  - Blood test abnormal [None]
  - Weight decreased [None]

NARRATIVE: CASE EVENT DATE: 20150801
